FAERS Safety Report 11212627 (Version 2)
Quarter: 2015Q3

REPORT INFORMATION
  Report Type: Spontaneous
  Country: US (occurrence: US)
  Receive Date: 20150623
  Receipt Date: 20150803
  Transmission Date: 20151125
  Serious: Yes (Death, Hospitalization)
  Sender: FDA-Public Use
  Company Number: US-ACTELION-A-NJ2015-119494

PATIENT
  Age: 76 Year
  Sex: Female

DRUGS (21)
  1. LASIX [Concomitant]
     Active Substance: FUROSEMIDE
     Dosage: 60 MG, QD
     Dates: end: 20150531
  2. COMBIVENT RESPIMAT [Concomitant]
     Active Substance: ALBUTEROL SULFATE\IPRATROPIUM BROMIDE
     Dosage: 1 PUFF, Q5D
     Dates: end: 20150531
  3. FOLIC ACID. [Concomitant]
     Active Substance: FOLIC ACID
     Dosage: 800 MCG, UNK
  4. ASPIRIN. [Concomitant]
     Active Substance: ASPIRIN
  5. ZINC [Concomitant]
     Active Substance: ZINC\ZINC CHLORIDE
     Dosage: 50 MG, QD
  6. SELENIUM [Concomitant]
     Active Substance: SELENIUM
     Dosage: 200 MCG, UNK
  7. MAGNESIUM [Concomitant]
     Active Substance: MAGNESIUM
     Dosage: 250 MG, QD
  8. VITAMIN E [Concomitant]
     Active Substance: .ALPHA.-TOCOPHEROL
     Dosage: 400 UNK, UNK
  9. SPIRIVA [Concomitant]
     Active Substance: TIOTROPIUM BROMIDE MONOHYDRATE
     Dosage: UNK, QD
     Dates: end: 20150531
  10. ONE A DAY WOMEN^S [Concomitant]
     Active Substance: MINERALS\VITAMINS
  11. METOPROLOL [Concomitant]
     Active Substance: METOPROLOL
     Dosage: 25 MG, QPM
     Dates: end: 20150531
  12. SYNTHROID [Concomitant]
     Active Substance: LEVOTHYROXINE SODIUM
     Dosage: .175 MG, QD
     Dates: end: 20150531
  13. VITAMIN C [Concomitant]
     Active Substance: ASCORBIC ACID
     Dosage: 1000 MG, UNK
  14. PRAVASTATIN [Concomitant]
     Active Substance: PRAVASTATIN\PRAVASTATIN SODIUM
     Dosage: 140 MG, QPM
     Dates: end: 20150531
  15. CALCIUM [Concomitant]
     Active Substance: CALCIUM
     Dosage: 1200 MG, QD
  16. ACIDOPHILUS [Concomitant]
     Active Substance: LACTOBACILLUS ACIDOPHILUS
  17. OPSUMIT [Suspect]
     Active Substance: MACITENTAN
     Indication: PULMONARY ARTERIAL HYPERTENSION
     Dosage: 10 MG, QD
     Route: 048
     Dates: start: 20140808, end: 20150531
  18. METOPROLOL [Concomitant]
     Active Substance: METOPROLOL
     Dosage: 100 MG, QAM
     Dates: end: 20150531
  19. PREDNISONE. [Concomitant]
     Active Substance: PREDNISONE
     Dosage: 10 MG, QD
     Dates: end: 20150531
  20. VITAMIN B12 [Concomitant]
     Active Substance: CYANOCOBALAMIN
     Dosage: 500 UNK, UNK
  21. VITAMIN D3 [Concomitant]
     Active Substance: CHOLECALCIFEROL
     Dosage: 400 UNK, UNK

REACTIONS (1)
  - Respiratory failure [Fatal]
